FAERS Safety Report 7040120-9 (Version None)
Quarter: 2010Q4

REPORT INFORMATION
  Report Type: 
  Country: None (occurrence: None)
  Receive Date: 20101012
  Receipt Date: 20101004
  Transmission Date: 20110411
  Serious: Yes (Hospitalization)
  Sender: FDA-Public Use
  Company Number: JP-SHIRE-SPV1-2010-01739

PATIENT
  Sex: Female

DRUGS (13)
  1. LANTHANUM CARBONATE [Suspect]
     Indication: HYPERPHOSPHATAEMIA
     Dosage: 750 MG TOTAL DAILY DOSE (IMMEDIATELY AFTER MEALS)
     Route: 048
     Dates: start: 20090727, end: 20100509
  2. LANTHANUM CARBONATE [Suspect]
     Dosage: 1500 MG, UNKNOWN
     Route: 048
     Dates: start: 20100510, end: 20100611
  3. LANTHANUM CARBONATE [Suspect]
     Dosage: 750 MG TOTAL DAILY DOSE (IMMEDIATELY AFTER MEALS)
     Route: 048
     Dates: start: 20100705
  4. CALCIUM CARBONATE [Concomitant]
     Indication: HYPERPHOSPHATAEMIA
     Dosage: 1500 MG, UNKNOWN
     Route: 048
     Dates: start: 20090727
  5. ROCALTROL [Concomitant]
     Indication: PRODUCT USED FOR UNKNOWN INDICATION
     Dosage: .5 UG, UNKNOWN
     Route: 048
     Dates: start: 20090727, end: 20091019
  6. ALFAROL [Concomitant]
     Indication: PRODUCT USED FOR UNKNOWN INDICATION
     Dosage: .25 UG, UNKNOWN
     Route: 048
     Dates: start: 20091020
  7. PROMAC                             /00024401/ [Concomitant]
     Indication: PRODUCT USED FOR UNKNOWN INDICATION
     Dosage: 150 MG, UNKNOWN
     Route: 048
  8. PREDNISOLONE [Concomitant]
     Indication: PRODUCT USED FOR UNKNOWN INDICATION
     Dosage: 10 MG, UNKNOWN
     Route: 048
  9. DAIO-KANZO-TO [Concomitant]
     Indication: PRODUCT USED FOR UNKNOWN INDICATION
     Dosage: 7.5 MG, UNKNOWN
     Route: 048
  10. BIO-THREE [Concomitant]
     Indication: PRODUCT USED FOR UNKNOWN INDICATION
     Dosage: 3 DF, UNKNOWN
     Route: 048
  11. NESP [Concomitant]
     Indication: PRODUCT USED FOR UNKNOWN INDICATION
     Dosage: 20 UG, UNKNOWN
     Route: 042
  12. FERRICON [Concomitant]
     Indication: PRODUCT USED FOR UNKNOWN INDICATION
     Dosage: 50 MG, UNKNOWN
     Route: 042
  13. RENAGEL [Concomitant]
     Indication: HYPERPHOSPHATAEMIA
     Dosage: 1500 MG, UNKNOWN
     Route: 048

REACTIONS (2)
  - ARTHRALGIA [None]
  - PERITONITIS [None]
